FAERS Safety Report 6008112-6 (Version None)
Quarter: 2008Q4

REPORT INFORMATION
  Report Type: 
  Country: None (occurrence: None)
  Receive Date: 20081217
  Receipt Date: 20080825
  Transmission Date: 20090506
  Serious: No
  Sender: FDA-Public Use
  Company Number: US-ASTRAZENECA-2008UW17346

PATIENT
  Age: 74 Year
  Sex: Male
  Weight: 78.9 kg

DRUGS (9)
  1. CRESTOR [Suspect]
     Indication: BLOOD CHOLESTEROL INCREASED
     Route: 048
     Dates: start: 20080801
  2. VYTORIN [Concomitant]
     Dates: end: 20080817
  3. PREVACID [Concomitant]
  4. HYTRIN [Concomitant]
  5. TERAZOSIN HCL [Concomitant]
  6. PROSCAR [Concomitant]
  7. ALTACE [Concomitant]
  8. ATENOLOL [Concomitant]
  9. ASPIRIN [Concomitant]
     Dosage: 81

REACTIONS (3)
  - ABDOMINAL DISCOMFORT [None]
  - ABDOMINAL DISTENSION [None]
  - DIARRHOEA [None]
